FAERS Safety Report 9022160 (Version 1)
Quarter: 2013Q1

REPORT INFORMATION
  Report Type: Spontaneous
  Country: US (occurrence: US)
  Receive Date: 20130118
  Receipt Date: 20130118
  Transmission Date: 20140127
  Serious: Yes (Other)
  Sender: FDA-Public Use
  Company Number: US-BAYER-2013-005163

PATIENT
  Sex: 0

DRUGS (2)
  1. ALEVE CAPLET/TABLET,MIDOL EXTENDED RELIEF CAPLET [Suspect]
     Dosage: 4 DF ALMOST EVER 20 MINUTES FOR THE PAST 4 HOURS
  2. ADVIL [Concomitant]
     Indication: PAIN
     Dosage: 2 DF, UNK

REACTIONS (2)
  - Overdose [None]
  - Drug ineffective [None]
